FAERS Safety Report 6083848-X (Version None)
Quarter: 2009Q1

REPORT INFORMATION
  Report Type: 
  Country: None (occurrence: None)
  Receive Date: 20090219
  Receipt Date: 20090206
  Transmission Date: 20090719
  Serious: Yes (Death)
  Sender: FDA-Public Use
  Company Number: CA-ELI_LILLY_AND_COMPANY-CA200902001686

PATIENT
  Age: 49 Year
  Sex: Male

DRUGS (15)
  1. FORTEO [Suspect]
     Indication: OSTEOPOROSIS
     Dosage: 20 UG, DAILY (1/D)
     Route: 058
     Dates: start: 20080517, end: 20080818
  2. FORTEO [Suspect]
     Dosage: 20 UG, DAILY (1/D)
     Route: 058
     Dates: start: 20081227
  3. PREDNISONE [Concomitant]
  4. CITALOPRAM HYDROBROMIDE [Concomitant]
  5. METFORMIN HCL [Concomitant]
  6. FERROUS SULFATE TAB [Concomitant]
  7. DILTIAZEM [Concomitant]
  8. RAMIPRIL [Concomitant]
  9. FUROSEMIDE [Concomitant]
  10. METHADONE HCL [Concomitant]
  11. NEXIUM [Concomitant]
  12. CALCIUM                                 /N/A/ [Concomitant]
  13. VITAMIN D [Concomitant]
  14. VENTOLIN                                /SCH/ [Concomitant]
  15. PULMICORT-100 [Concomitant]

REACTIONS (1)
  - MYOCARDIAL INFARCTION [None]
